FAERS Safety Report 14144596 (Version 1)
Quarter: 2017Q4

REPORT INFORMATION
  Report Type: Report from Study
  Country: US (occurrence: US)
  Receive Date: 20171031
  Receipt Date: 20171031
  Transmission Date: 20180321
  Serious: Yes (Hospitalization)
  Sender: FDA-Public Use
  Company Number: US-VIFOR (INTERNATIONAL) INC.-VIT-2017-06449

PATIENT
  Sex: Male
  Weight: 83.99 kg

DRUGS (3)
  1. INSULIN [Concomitant]
     Active Substance: INSULIN NOS
     Indication: DIABETES MELLITUS
  2. VELTASSA [Suspect]
     Active Substance: PATIROMER
     Indication: BLOOD POTASSIUM INCREASED
     Route: 048
     Dates: start: 20170502, end: 20170920
  3. LASIX [Concomitant]
     Active Substance: FUROSEMIDE

REACTIONS (5)
  - Pulmonary oedema [Recovered/Resolved]
  - Therapeutic response unexpected [Unknown]
  - Drug dose omission [Unknown]
  - Renal failure [Recovering/Resolving]
  - Fluid overload [Recovered/Resolved]

NARRATIVE: CASE EVENT DATE: 2017
